FAERS Safety Report 6140493-5 (Version None)
Quarter: 2009Q1

REPORT INFORMATION
  Report Type: 
  Country: None (occurrence: None)
  Receive Date: 20090331
  Receipt Date: 20090316
  Transmission Date: 20090719
  Serious: Yes (Hospitalization)
  Sender: FDA-Public Use
  Company Number: 2009000610

PATIENT
  Age: 39 Year
  Sex: Female
  Weight: 78 kg

DRUGS (15)
  1. ERLOTINIB (ERLOTINIB) (TABLET) (ERLOTINIB) [Suspect]
     Indication: NON-SMALL CELL LUNG CANCER
     Dosage: 150 MG, QD, ORAL
     Route: 048
     Dates: start: 20081209, end: 20090123
  2. CP-751,871 [Suspect]
     Indication: NON-SMALL CELL LUNG CANCER
     Dosage: 1558 MG, Q3W, INTRAVENOUS
     Route: 042
     Dates: start: 20081209, end: 20090102
  3. BACTRIM DS [Concomitant]
  4. CLINDAMYCIN PHOSPHATE [Concomitant]
  5. ALBUTEROL [Concomitant]
  6. TYLENOL WITH CODEINE (PANADEINE CO) [Concomitant]
  7. PREDNISONE [Concomitant]
  8. GEMCITABINE HCL [Concomitant]
  9. ATOVAQUONE [Concomitant]
  10. BENZONATATE [Concomitant]
  11. METFORMIN HCL [Concomitant]
  12. RANITIDINE [Concomitant]
  13. ROBITUSSIN (GUAIFENESIN) [Concomitant]
  14. MIRALAX [Concomitant]
  15. ZANTAC 150 [Concomitant]

REACTIONS (5)
  - HAEMATOCRIT DECREASED [None]
  - HAEMOGLOBIN DECREASED [None]
  - HAEMOPTYSIS [None]
  - THROMBOCYTOPENIA [None]
  - WHITE BLOOD CELL COUNT DECREASED [None]
